FAERS Safety Report 5336231-6 (Version None)
Quarter: 2007Q2

REPORT INFORMATION
  Report Type: 
  Country: None (occurrence: None)
  Receive Date: 20070315
  Receipt Date: 20070129
  Transmission Date: 20071010
  Serious: No
  Sender: FDA-Public Use
  Company Number: BDI-009096

PATIENT
  Sex: Female

DRUGS (1)
  1. MULTIHANCE [Suspect]
     Dosage: SY
     Dates: start: 20070116, end: 20070116

REACTIONS (1)
  - URTICARIA [None]
